FAERS Safety Report 6171936-9 (Version None)
Quarter: 2009Q2

REPORT INFORMATION
  Report Type: 
  Country: None (occurrence: None)
  Receive Date: 20090429
  Receipt Date: 20090421
  Transmission Date: 20091009
  Serious: Yes (Death, Other)
  Sender: FDA-Public Use
  Company Number: CO-ELI_LILLY_AND_COMPANY-CO200904001944

PATIENT
  Age: 60 Year
  Sex: Female

DRUGS (5)
  1. BYETTA [Suspect]
     Indication: TYPE 2 DIABETES MELLITUS
     Dosage: 5 UG, 2/D
     Route: 058
     Dates: start: 20080301, end: 20080401
  2. BYETTA [Suspect]
     Dosage: 10 UG, 2/D
     Route: 058
     Dates: start: 20080401, end: 20090405
  3. INSULATARD NPH HUMAN [Concomitant]
     Dosage: UNK, UNKNOWN
     Route: 065
  4. INSULIN [Concomitant]
     Dosage: UNK, UNKNOWN
     Route: 065
  5. OXYGEN [Concomitant]
     Indication: OXYGEN SUPPLEMENTATION
     Dosage: UNK, UNKNOWN
     Route: 065

REACTIONS (6)
  - ASTHENIA [None]
  - DIZZINESS [None]
  - DYSSTASIA [None]
  - EPISTAXIS [None]
  - INFARCTION [None]
  - LOSS OF CONSCIOUSNESS [None]
